FAERS Safety Report 25018187 (Version 1)
Quarter: 2025Q1

REPORT INFORMATION
  Report Type: Spontaneous
  Country: US (occurrence: None)
  Receive Date: 20250227
  Receipt Date: 20250227
  Transmission Date: 20250408
  Serious: No
  Sender: FDA-CTU
  Company Number: None

PATIENT

DRUGS (1)
  1. OPSUMIT [Suspect]
     Active Substance: MACITENTAN

REACTIONS (14)
  - Cough [None]
  - Productive cough [None]
  - Tremor [None]
  - Loss of consciousness [None]
  - Dyspnoea [None]
  - Wheezing [None]
  - Depression [None]
  - Decreased interest [None]
  - Insomnia [None]
  - Fatigue [None]
  - Restlessness [None]
  - Psychiatric symptom [None]
  - Haemorrhage [None]
  - Diverticulitis [None]
